FAERS Safety Report 9931039 (Version 2)
Quarter: 2014Q1

REPORT INFORMATION
  Report Type: Spontaneous
  Country: JP (occurrence: JP)
  Receive Date: 20140227
  Receipt Date: 20140227
  Transmission Date: 20141002
  Serious: Yes (Hospitalization, Other)
  Sender: FDA-Public Use
  Company Number: PHHY2013JP130457

PATIENT
  Age: 63 Year
  Sex: Male
  Weight: 59 kg

DRUGS (4)
  1. TEGRETOL [Suspect]
     Indication: CONVULSION
     Dosage: 200 MG, DAILY
     Route: 048
     Dates: start: 20130811, end: 20130919
  2. OLMETEC [Concomitant]
     Indication: HYPERTENSION
     Dosage: 20 MG, UNK
     Route: 048
     Dates: start: 20130818, end: 20131024
  3. ADALAT [Concomitant]
     Indication: HYPERTENSION
     Dosage: 40 MG, UNK
     Route: 048
     Dates: start: 20130818, end: 20131016
  4. E KEPPRA [Concomitant]
     Indication: CONVULSION
     Dosage: 1000 MG, UNK
     Route: 048
     Dates: start: 20130919

REACTIONS (16)
  - Lymphadenopathy [Unknown]
  - Erythema [Unknown]
  - Hepatic function abnormal [Recovering/Resolving]
  - Renal impairment [Unknown]
  - VIIth nerve paralysis [Not Recovered/Not Resolved]
  - Human herpes virus 6 serology positive [Unknown]
  - Platelet count increased [Unknown]
  - C-reactive protein increased [Unknown]
  - Haemoglobin decreased [Unknown]
  - Red blood cell count decreased [Unknown]
  - Drug reaction with eosinophilia and systemic symptoms [Not Recovered/Not Resolved]
  - Rash [Recovered/Resolved]
  - Eosinophil count increased [Unknown]
  - Dermatitis exfoliative [Unknown]
  - Pyrexia [Unknown]
  - Rash pustular [Unknown]
